FAERS Safety Report 10308881 (Version 1)
Quarter: 2014Q3

REPORT INFORMATION
  Report Type: Spontaneous
  Country: IT (occurrence: None)
  Receive Date: 20140714
  Receipt Date: 20140714
  Transmission Date: 20150326
  Serious: Yes (Hospitalization)
  Sender: FDA-Public Use
  Company Number: AUR-APL-2014-07323

PATIENT
  Age: 24 Year
  Sex: Male

DRUGS (2)
  1. LEVOFLOXACIN [Suspect]
     Active Substance: LEVOFLOXACIN
     Indication: BRONCHITIS
     Dosage: 1 DF, TOTAL, ORAL
     Route: 048
     Dates: start: 20140702, end: 20140702
  2. DEBRUM (MEDAZEPAM, TRIMEBUTINE MALEATE) [Concomitant]

REACTIONS (6)
  - Vision blurred [None]
  - Hypotension [None]
  - Vertigo [None]
  - Rash [None]
  - Oedema peripheral [None]
  - Pruritus generalised [None]

NARRATIVE: CASE EVENT DATE: 20140702
